FAERS Safety Report 10207673 (Version 1)
Quarter: 2014Q2

REPORT INFORMATION
  Report Type: Spontaneous
  Country: US (occurrence: None)
  Receive Date: 20140529
  Receipt Date: 20140529
  Transmission Date: 20141212
  Serious: No
  Sender: FDA-Public Use
  Company Number: None

PATIENT
  Age: 22 Year
  Sex: Female
  Weight: 54.43 kg

DRUGS (1)
  1. COPAXONE [Suspect]
     Indication: RELAPSING-REMITTING MULTIPLE SCLEROSIS
     Route: 058
     Dates: start: 20140513, end: 20140528

REACTIONS (10)
  - Fatigue [None]
  - Migraine [None]
  - Activities of daily living impaired [None]
  - Flushing [None]
  - Chest pain [None]
  - Dyspnoea [None]
  - Anxiety [None]
  - Nausea [None]
  - Vomiting [None]
  - Diarrhoea [None]
